FAERS Safety Report 16842868 (Version 1)
Quarter: 2019Q3

REPORT INFORMATION
  Report Type: Report from Study
  Country: IT (occurrence: IT)
  Receive Date: 20190924
  Receipt Date: 20190924
  Transmission Date: 20191005
  Serious: Yes (Hospitalization)
  Sender: FDA-Public Use
  Company Number: IT-TEVA-2019-IT-1111741

PATIENT
  Age: 47 Year
  Sex: Female

DRUGS (2)
  1. ZOLPIDEM [Suspect]
     Active Substance: ZOLPIDEM TARTRATE
     Dosage: 60 DF
     Route: 048
     Dates: start: 20190801, end: 20190801
  2. EN [Suspect]
     Active Substance: DELORAZEPAM
     Dosage: 80 MG
     Route: 048
     Dates: start: 20190801, end: 20190801

REACTIONS (3)
  - Drug abuse [Recovered/Resolved]
  - Sopor [Recovered/Resolved]
  - Sluggishness [Recovered/Resolved]

NARRATIVE: CASE EVENT DATE: 20190801
